FAERS Safety Report 8460423-0 (Version None)
Quarter: 2012Q2

REPORT INFORMATION
  Report Type: 
  Country: None (occurrence: None)
  Receive Date: 20120622
  Receipt Date: 20120618
  Transmission Date: 20120825
  Serious: Yes (Death, Other)
  Sender: FDA-Public Use
  Company Number: FR-ASTRAZENECA-2012SE33580

PATIENT
  Age: 20211 Day
  Sex: Male

DRUGS (15)
  1. QUETIAPINE FUMARATE [Suspect]
     Indication: SCHIZOPHRENIA
     Route: 048
     Dates: start: 20120416
  2. OLANZAPINE [Suspect]
     Route: 048
     Dates: start: 20060301, end: 20120415
  3. FENOFIBRATE [Suspect]
     Route: 048
  4. VENLAFAXINE [Suspect]
     Route: 048
  5. ZOLPIDEM [Suspect]
     Route: 048
  6. NITRAZEPAM [Suspect]
     Route: 065
  7. OLANZAPINE [Suspect]
     Route: 048
     Dates: start: 20120417
  8. ALPRAZOLAM [Suspect]
     Route: 048
  9. ALFUZOSIN HCL [Suspect]
     Route: 048
  10. LERCANIDIPINE [Suspect]
     Route: 048
  11. NEXIUM [Suspect]
     Route: 048
  12. GLUCOPHAGE [Suspect]
     Route: 048
  13. VALSARTAN  AND HYDROCHLOROTHIAZIDE [Suspect]
     Route: 048
  14. GLYBURIDE [Suspect]
     Route: 048
  15. TRIMEPRAZINE TARTRATE [Suspect]
     Route: 048

REACTIONS (2)
  - CARDIAC ARREST [None]
  - VOMITING [None]
